FAERS Safety Report 25508699 (Version 1)
Quarter: 2025Q3

REPORT INFORMATION
  Report Type: Spontaneous
  Country: US (occurrence: US)
  Receive Date: 20250703
  Receipt Date: 20250703
  Transmission Date: 20251021
  Serious: No
  Sender: ROCHE
  Company Number: US-ROCHE-10000321372

PATIENT
  Age: 34 Year
  Sex: Female
  Weight: 78.47 kg

DRUGS (3)
  1. XOLAIR PFS [Suspect]
     Active Substance: OMALIZUMAB
     Indication: Hypersensitivity
     Route: 058
     Dates: start: 202408, end: 20250618
  2. XOLAIR PFS [Suspect]
     Active Substance: OMALIZUMAB
  3. XOLAIR [Suspect]
     Active Substance: OMALIZUMAB
     Indication: Hypersensitivity
     Route: 058

REACTIONS (2)
  - Off label use [Unknown]
  - No adverse event [Unknown]

NARRATIVE: CASE EVENT DATE: 20240801
